FAERS Safety Report 24009241 (Version 1)
Quarter: 2024Q2

REPORT INFORMATION
  Report Type: Report from Study
  Country: US (occurrence: US)
  Receive Date: 20240625
  Receipt Date: 20240625
  Transmission Date: 20240716
  Serious: No
  Sender: FDA-Public Use
  Company Number: US-BANNER LIFE SCIENCES-USBAN23000070

PATIENT

DRUGS (1)
  1. BAFIERTAM [Suspect]
     Active Substance: MONOMETHYL FUMARATE
     Indication: Product used for unknown indication
     Dosage: 190 MILLIGRAM, BID
     Route: 048
     Dates: start: 20231021

REACTIONS (3)
  - Blood pressure increased [Unknown]
  - Dizziness [Not Recovered/Not Resolved]
  - Flushing [Unknown]

NARRATIVE: CASE EVENT DATE: 20231021
